FAERS Safety Report 7516950-3 (Version None)
Quarter: 2011Q2

REPORT INFORMATION
  Report Type: 
  Country: None (occurrence: None)
  Receive Date: 20110601
  Receipt Date: 20110517
  Transmission Date: 20111010
  Serious: Yes (Hospitalization)
  Sender: FDA-Public Use
  Company Number: BR-WATSON-2011-06991

PATIENT
  Age: 23 Year
  Sex: Male

DRUGS (1)
  1. RISPERIDONE [Suspect]
     Indication: SCHIZOPHRENIA
     Dosage: 2 TABLETS MORNING/ 2 TABLETS NIGHT
     Route: 048
     Dates: start: 20090101

REACTIONS (3)
  - MEDICATION ERROR [None]
  - PSYCHOTIC DISORDER [None]
  - SUICIDAL IDEATION [None]
